FAERS Safety Report 5989332-3 (Version None)
Quarter: 2008Q4

REPORT INFORMATION
  Report Type: 
  Country: None (occurrence: None)
  Receive Date: 20081210
  Receipt Date: 20081203
  Transmission Date: 20090506
  Serious: Yes (Death, Hospitalization)
  Sender: FDA-Public Use
  Company Number: BE-ABBOTT-08P-013-0490983-00

PATIENT
  Sex: Male
  Weight: 73 kg

DRUGS (2)
  1. LUCRIN DEPOT FOR INJECTION [Suspect]
     Indication: PROSTATE CANCER
     Dates: start: 20060803, end: 20080410
  2. ESTRAMUSTINE PHOSPHATE SODIUM [Concomitant]
     Indication: DRUG USE FOR UNKNOWN INDICATION

REACTIONS (3)
  - CARDIAC FAILURE [None]
  - PULMONARY EMBOLISM [None]
  - THROMBOPHLEBITIS [None]
